FAERS Safety Report 10256434 (Version 1)
Quarter: 2014Q2

REPORT INFORMATION
  Report Type: Spontaneous
  Country: SE (occurrence: SE)
  Receive Date: 20140624
  Receipt Date: 20140624
  Transmission Date: 20141212
  Serious: Yes (Hospitalization)
  Sender: FDA-Public Use
  Company Number: US-ASTRAZENECA-2014SE45570

PATIENT
  Age: 108 Day
  Sex: Female

DRUGS (13)
  1. SYNAGIS [Suspect]
     Indication: PREMATURE BABY
     Dosage: 1.3 ML MONTHLY, 1.3 ML DIVIDED IN TWO SYRINGES, FIRST DOSE
     Route: 030
     Dates: start: 201312
  2. SYNAGIS [Suspect]
     Indication: RESPIRATORY TRACT INFECTION
     Dosage: 1.3 ML MONTHLY, 1.3 ML DIVIDED IN TWO SYRINGES, FIRST DOSE
     Route: 030
     Dates: start: 201312
  3. SYNAGIS [Suspect]
     Indication: PREMATURE BABY
     Dosage: SECOND DOSE
     Route: 030
  4. SYNAGIS [Suspect]
     Indication: RESPIRATORY TRACT INFECTION
     Dosage: SECOND DOSE
     Route: 030
  5. SYNAGIS [Suspect]
     Indication: PREMATURE BABY
     Dosage: THIRD DOSE
     Route: 030
  6. SYNAGIS [Suspect]
     Indication: RESPIRATORY TRACT INFECTION
     Dosage: THIRD DOSE
     Route: 030
  7. SYNAGIS [Suspect]
     Indication: PREMATURE BABY
     Dosage: FOURTH DOSE
     Route: 030
  8. SYNAGIS [Suspect]
     Indication: RESPIRATORY TRACT INFECTION
     Dosage: FOURTH DOSE
     Route: 030
  9. SYNAGIS [Suspect]
     Indication: PREMATURE BABY
     Dosage: FIFTH DOSE
     Route: 030
     Dates: start: 20140311
  10. SYNAGIS [Suspect]
     Indication: RESPIRATORY TRACT INFECTION
     Dosage: FIFTH DOSE
     Route: 030
     Dates: start: 20140311
  11. FLUTIDE [Concomitant]
     Indication: PRODUCT USED FOR UNKNOWN INDICATION
     Route: 055
  12. AIROMIR [Concomitant]
     Indication: PRODUCT USED FOR UNKNOWN INDICATION
     Route: 055
  13. EMLA [Concomitant]
     Indication: PRODUCT USED FOR UNKNOWN INDICATION
     Dosage: 1 HOUR BEFORE SYNAGIS INJECTION

REACTIONS (2)
  - Balance disorder [Recovered/Resolved]
  - Fall [Recovered/Resolved]
